FAERS Safety Report 24323374 (Version 3)
Quarter: 2024Q4

REPORT INFORMATION
  Report Type: Spontaneous
  Country: GB (occurrence: GB)
  Receive Date: 20240916
  Receipt Date: 20241113
  Transmission Date: 20250114
  Serious: Yes (Other)
  Sender: TEVA
  Company Number: GB-GLENMARK PHARMACEUTICALS-2024GMK093611

PATIENT
  Sex: Female

DRUGS (1)
  1. OLANZAPINE [Suspect]
     Active Substance: OLANZAPINE
     Indication: Product used for unknown indication
     Dosage: DAILY DOSE: 10 MG DAILY
     Route: 048

REACTIONS (3)
  - Mental impairment [Unknown]
  - Product availability issue [Unknown]
  - Therapy interrupted [Unknown]
